FAERS Safety Report 7019587-8 (Version None)
Quarter: 2010Q3

REPORT INFORMATION
  Report Type: 
  Country: None (occurrence: None)
  Receive Date: 20100928
  Receipt Date: 20100928
  Transmission Date: 20110219
  Serious: Yes (Other)
  Sender: FDA-Public Use
  Company Number: None

PATIENT
  Age: 72 Year
  Sex: Male
  Weight: 92.9874 kg

DRUGS (1)
  1. TAMSULOSIN HCL [Suspect]
     Indication: DYSURIA
     Dosage: 0.4 MG DAILY PO
     Route: 048
     Dates: start: 20100922, end: 20100922

REACTIONS (8)
  - DIZZINESS [None]
  - EPIGASTRIC DISCOMFORT [None]
  - EYE PAIN [None]
  - HEADACHE [None]
  - INSOMNIA [None]
  - MUSCULAR WEAKNESS [None]
  - NASAL CONGESTION [None]
  - UPPER AIRWAY OBSTRUCTION [None]
